FAERS Safety Report 17209271 (Version 1)
Quarter: 2019Q4

REPORT INFORMATION
  Report Type: Spontaneous
  Country: SE (occurrence: SE)
  Receive Date: 20191227
  Receipt Date: 20191227
  Transmission Date: 20200122
  Serious: Yes (Hospitalization)
  Sender: FDA-Public Use
  Company Number: SE-MYLANLABS-2019M1128781

PATIENT
  Sex: Female

DRUGS (1)
  1. LERGIGAN FORTE 50 MG FILMDRAGERADE TABLETTER [Suspect]
     Active Substance: PROMETHAZINE HYDROCHLORIDE
     Indication: PRODUCT USED FOR UNKNOWN INDICATION
     Dosage: VID KL 19.30 OCH 21, TOTALT 50 TABLETTER/2500 MG
     Route: 048
     Dates: start: 20180916, end: 20180916

REACTIONS (7)
  - Intentional overdose [Unknown]
  - Lethargy [Unknown]
  - Intentional self-injury [Unknown]
  - Depressed level of consciousness [Unknown]
  - Hypotonia [Unknown]
  - Mydriasis [Unknown]
  - Tachycardia [Unknown]

NARRATIVE: CASE EVENT DATE: 20180916
